FAERS Safety Report 7657380 (Version 6)
Quarter: 2015Q4

REPORT INFORMATION
  Report Type: Spontaneous
  Country: US (occurrence: US)
  Receive Date: 20101105
  Receipt Date: 20151201
  Transmission Date: 20160305
  Serious: Yes (Hospitalization, Other)
  Sender: FDA-Public Use
  Company Number: US-BAYER-201039241NA

PATIENT
  Age: 41 Year
  Sex: Female
  Weight: 100 kg

DRUGS (6)
  1. TOPROL XL [Concomitant]
     Active Substance: METOPROLOL SUCCINATE
     Dosage: 50 MG, EVERY MORNING
  2. ZITHROMAX [Concomitant]
     Active Substance: AZITHROMYCIN DIHYDRATE
     Dosage: 250 MG, UNK
     Dates: start: 20041228
  3. ALTACE [Concomitant]
     Active Substance: RAMIPRIL
     Dosage: 10 MG, DAILY
  4. YASMIN [Suspect]
     Active Substance: DROSPIRENONE\ETHINYL ESTRADIOL
     Indication: CONTRACEPTION
     Dosage: UNK
     Route: 048
     Dates: start: 20030804, end: 20050307
  5. YASMIN [Suspect]
     Active Substance: DROSPIRENONE\ETHINYL ESTRADIOL
     Indication: MENSTRUAL CYCLE MANAGEMENT
  6. LIPITOR [Concomitant]
     Active Substance: ATORVASTATIN CALCIUM
     Dosage: 20 MG, DAILY

REACTIONS (2)
  - Myocardial infarction [Unknown]
  - Embolism arterial [None]

NARRATIVE: CASE EVENT DATE: 20050210
